FAERS Safety Report 15395697 (Version 1)
Quarter: 2018Q3

REPORT INFORMATION
  Report Type: Spontaneous
  Country: FR (occurrence: FR)
  Receive Date: 20180918
  Receipt Date: 20180918
  Transmission Date: 20181010
  Serious: Yes (Hospitalization)
  Sender: FDA-Public Use
  Company Number: FR-JNJFOC-20180909318

PATIENT
  Age: 23 Year
  Sex: Female

DRUGS (4)
  1. AMOXICILLIN. [Concomitant]
     Active Substance: AMOXICILLIN
     Route: 065
  2. INEXIUM [Concomitant]
     Active Substance: ESOMEPRAZOLE
     Route: 065
  3. TRAMADOL HYDROCHLORIDE. [Suspect]
     Active Substance: TRAMADOL HYDROCHLORIDE
     Indication: INTERVERTEBRAL DISC PROTRUSION
     Route: 048
     Dates: start: 20180411, end: 20180413
  4. PARACETAMOL [Suspect]
     Active Substance: ACETAMINOPHEN
     Indication: INTERVERTEBRAL DISC PROTRUSION
     Route: 048
     Dates: start: 20180411, end: 20180413

REACTIONS (2)
  - Hepatitis [Recovered/Resolved]
  - Pancreatitis [Recovered/Resolved]

NARRATIVE: CASE EVENT DATE: 20180413
